FAERS Safety Report 13687145 (Version 2)
Quarter: 2017Q3

REPORT INFORMATION
  Report Type: Spontaneous
  Country: DE (occurrence: DE)
  Receive Date: 20170623
  Receipt Date: 20170705
  Transmission Date: 20171127
  Serious: Yes (Death, Hospitalization, Other)
  Sender: FDA-Public Use
  Company Number: DE-SA-2017SA114145

PATIENT
  Age: 65 Year
  Sex: Male
  Weight: 69 kg

DRUGS (1)
  1. MYOZYME [Suspect]
     Active Substance: ALGLUCOSIDASE ALFA
     Indication: GLYCOGEN STORAGE DISEASE TYPE II
     Route: 041
     Dates: start: 20141204, end: 20150326

REACTIONS (13)
  - Disease progression [Fatal]
  - Respiratory failure [Fatal]
  - Myopathy [Unknown]
  - Muscular dystrophy [Fatal]
  - Dyspnoea [Fatal]
  - Dysphagia [Fatal]
  - Brain injury [Fatal]
  - Pneumonia [Fatal]
  - Cough [Fatal]
  - Circulatory collapse [Unknown]
  - Lordosis [Fatal]
  - Product use issue [Unknown]
  - Respiratory arrest [Unknown]

NARRATIVE: CASE EVENT DATE: 2015
